FAERS Safety Report 5476930-9 (Version None)
Quarter: 2007Q4

REPORT INFORMATION
  Report Type: 
  Country: None (occurrence: None)
  Receive Date: 20071004
  Receipt Date: 20071001
  Transmission Date: 20080405
  Serious: Yes (Death)
  Sender: FDA-Public Use
  Company Number: FR-ASTRAZENECA-2007CG01311

PATIENT
  Age: 21466 Day
  Sex: Male

DRUGS (7)
  1. DIPRIVAN [Suspect]
     Indication: GENERAL ANAESTHESIA
     Route: 042
     Dates: start: 20070831, end: 20070831
  2. CELOCURINE [Suspect]
     Indication: GENERAL ANAESTHESIA
     Route: 042
     Dates: start: 20070831, end: 20070831
  3. SUFENTA [Suspect]
     Indication: GENERAL ANAESTHESIA
     Route: 042
     Dates: start: 20070831, end: 20070831
  4. BEFIZAL [Concomitant]
  5. ZYLORIC [Concomitant]
  6. AUGMENTIN '125' [Concomitant]
  7. TRANXENE [Concomitant]

REACTIONS (4)
  - BRAIN OEDEMA [None]
  - CARDIAC ARREST [None]
  - CEREBRAL ISCHAEMIA [None]
  - PROCEDURAL COMPLICATION [None]
